FAERS Safety Report 5146720-5 (Version None)
Quarter: 2006Q4

REPORT INFORMATION
  Report Type: 
  Country: None (occurrence: None)
  Receive Date: 20061109
  Receipt Date: 20060726
  Transmission Date: 20070319
  Serious: Yes (Hospitalization)
  Sender: FDA-Public Use
  Company Number: FR-ELI_LILLY_AND_COMPANY-FR200607004791

PATIENT
  Age: 71 Year
  Sex: Female
  Weight: 40 kg

DRUGS (9)
  1. FORTEO [Suspect]
     Indication: OSTEOPOROSIS
     Dosage: 20 UG, DAILY (1/D)
     Route: 058
     Dates: start: 20050501
  2. CELANCE [Concomitant]
     Indication: PARKINSON'S DISEASE
     Dosage: 2.5 MG, DAILY (1/D)
     Route: 048
     Dates: start: 20000101
  3. MODOPAR [Concomitant]
     Indication: PARKINSON'S DISEASE
     Dosage: 625 MG, DAILY (1/D)
     Route: 048
     Dates: start: 20000101
  4. DOMPERIDONE [Concomitant]
     Dosage: 2 D/F, 3/D
     Route: 048
     Dates: start: 20000101
  5. DUROGESIC                               /DEN/ [Concomitant]
     Indication: PAIN
     Dosage: 50 UG, DAILY (1/D)
     Route: 062
     Dates: start: 20040101
  6. POTASSIUM CHLORIDE [Concomitant]
     Indication: HYPOKALAEMIA
  7. ACETAMINOPHEN W/ PROPOXYPHENE HCL [Concomitant]
     Dosage: 2 D/F, 3/D
     Route: 048
     Dates: start: 20000101
  8. MIANSERIN [Concomitant]
     Dosage: 30 MG, DAILY (1/D)
     Route: 048
     Dates: start: 20050101
  9. ALPRAZOLAM [Concomitant]
     Route: 048
     Dates: start: 20060901

REACTIONS (2)
  - PYELONEPHRITIS [None]
  - RENAL ABSCESS [None]
